FAERS Safety Report 26125140 (Version 1)
Quarter: 2025Q4

REPORT INFORMATION
  Report Type: Report from Study
  Country: CO (occurrence: CO)
  Receive Date: 20251205
  Receipt Date: 20251205
  Transmission Date: 20260117
  Serious: Yes (Disabling)
  Sender: ABBVIE
  Company Number: CO-ABBVIE-6575026

PATIENT

DRUGS (1)
  1. ZEMPLAR [Suspect]
     Active Substance: PARICALCITOL
     Indication: Hyperparathyroidism secondary
     Route: 065

REACTIONS (4)
  - Dysphonia [Unknown]
  - Drug ineffective [Unknown]
  - Pain [Recovered/Resolved]
  - Burning sensation [Recovered/Resolved]
